FAERS Safety Report 8669341 (Version 3)
Quarter: 2013Q1

REPORT INFORMATION
  Report Type: Spontaneous
  Country: GB (occurrence: GB)
  Receive Date: 20120717
  Receipt Date: 20130312
  Transmission Date: 20140127
  Serious: Yes (Life-Threatening, Hospitalization, Other)
  Sender: FDA-Public Use
  Company Number: GB-ROCHE-1088841

PATIENT
  Age: 44 Year
  Sex: Female

DRUGS (5)
  1. XOLAIR [Suspect]
     Indication: PRODUCT USED FOR UNKNOWN INDICATION
     Route: 058
  2. PREDNISOLONE [Concomitant]
  3. UNIPHYLLIN [Concomitant]
  4. FEXOFENADINE [Concomitant]
  5. SERETIDE [Concomitant]

REACTIONS (2)
  - Anaphylactic shock [Recovered/Resolved]
  - Blood immunoglobulin E decreased [Recovering/Resolving]
